FAERS Safety Report 12381808 (Version 3)
Quarter: 2016Q3

REPORT INFORMATION
  Report Type: Spontaneous
  Country: US (occurrence: US)
  Receive Date: 20160518
  Receipt Date: 20160912
  Transmission Date: 20161109
  Serious: No
  Sender: FDA-Public Use
  Company Number: US-ACTELION-A-US2016-135980

PATIENT
  Age: 26 Year
  Sex: Female

DRUGS (3)
  1. SILDENAFIL. [Concomitant]
     Active Substance: SILDENAFIL
  2. REMODULIN [Concomitant]
     Active Substance: TREPROSTINIL
  3. OPSUMIT [Suspect]
     Active Substance: MACITENTAN
     Indication: PULMONARY ARTERIAL HYPERTENSION
     Dosage: 10 MG, QD
     Route: 048
     Dates: start: 20160209

REACTIONS (7)
  - Catheter site pain [Not Recovered/Not Resolved]
  - Dyspnoea exertional [Unknown]
  - Muscle spasms [Unknown]
  - Diarrhoea [Unknown]
  - Decreased appetite [Unknown]
  - Catheter site erythema [Unknown]
  - Pneumonia [Unknown]
